FAERS Safety Report 21686096 (Version 2)
Quarter: 2022Q4

REPORT INFORMATION
  Report Type: Spontaneous
  Country: CN (occurrence: CN)
  Receive Date: 20221206
  Receipt Date: 20221216
  Transmission Date: 20230113
  Serious: No
  Sender: FDA-Public Use
  Company Number: CN-002147023-NVSC2022CN278541

PATIENT
  Age: 71 Year
  Sex: Female
  Weight: 72 kg

DRUGS (1)
  1. RANIBIZUMAB [Suspect]
     Active Substance: RANIBIZUMAB
     Indication: Macular oedema
     Dosage: 0.05 ML, QD
     Route: 050
     Dates: start: 20221117, end: 20221117

REACTIONS (4)
  - Eye pain [Recovering/Resolving]
  - Conjunctival hyperaemia [Recovering/Resolving]
  - Eye infarction [Unknown]
  - Ocular discomfort [Unknown]

NARRATIVE: CASE EVENT DATE: 20221117
